FAERS Safety Report 18838333 (Version 1)
Quarter: 2021Q1

REPORT INFORMATION
  Report Type: Spontaneous
  Country: US (occurrence: US)
  Receive Date: 20210203
  Receipt Date: 20210203
  Transmission Date: 20210419
  Serious: No
  Sender: FDA-Public Use
  Company Number: US-ALLERGAN-2031233US

PATIENT
  Age: 35 Year
  Sex: Female
  Weight: 48.98 kg

DRUGS (4)
  1. VITAMIN C [Concomitant]
     Active Substance: ASCORBIC ACID
     Indication: SUPPLEMENTATION THERAPY
     Dosage: UNK
     Dates: end: 202007
  2. ZINC. [Concomitant]
     Active Substance: ZINC
     Indication: SUPPLEMENTATION THERAPY
     Dosage: UNK
     Dates: end: 202007
  3. BOTOX COSMETIC [Suspect]
     Active Substance: ONABOTULINUMTOXINA
     Indication: SKIN WRINKLING
     Dosage: 10 UNITS, SINGLE
     Dates: start: 20200513, end: 20200513
  4. BOTOX COSMETIC [Suspect]
     Active Substance: ONABOTULINUMTOXINA
     Indication: SKIN WRINKLING
     Dosage: 20 UNITS, SINGLE
     Dates: start: 20200513, end: 20200513

REACTIONS (16)
  - Headache [Recovering/Resolving]
  - Nausea [Not Recovered/Not Resolved]
  - Impaired driving ability [Unknown]
  - Loss of employment [Unknown]
  - Loss of personal independence in daily activities [Unknown]
  - Muscular weakness [Not Recovered/Not Resolved]
  - Pain in jaw [Recovering/Resolving]
  - Asthenia [Not Recovered/Not Resolved]
  - Tongue disorder [Not Recovered/Not Resolved]
  - Malaise [Recovering/Resolving]
  - Eructation [Not Recovered/Not Resolved]
  - Fatigue [Recovering/Resolving]
  - Feeling abnormal [Recovering/Resolving]
  - Dysphagia [Not Recovered/Not Resolved]
  - Weight decreased [Not Recovered/Not Resolved]
  - Dyspnoea [Not Recovered/Not Resolved]

NARRATIVE: CASE EVENT DATE: 202005
